FAERS Safety Report 19839453 (Version 1)
Quarter: 2021Q3

REPORT INFORMATION
  Report Type: Spontaneous
  Country: FR (occurrence: FR)
  Receive Date: 20210915
  Receipt Date: 20210915
  Transmission Date: 20211014
  Serious: Yes (Other)
  Sender: FDA-Public Use
  Company Number: FR-TEVA-2021-FR-1955238

PATIENT
  Age: 29 Year
  Sex: Female

DRUGS (1)
  1. TRAMADOL TEVA NOS [Suspect]
     Active Substance: TRAMADOL HYDROCHLORIDE
     Indication: PAIN
     Dosage: SELF?MEDICATION
     Route: 065
     Dates: start: 20180211, end: 201802

REACTIONS (3)
  - Ulcerative keratitis [Not Recovered/Not Resolved]
  - Visual impairment [Not Recovered/Not Resolved]
  - Keratitis interstitial [Not Recovered/Not Resolved]

NARRATIVE: CASE EVENT DATE: 20180405
